FAERS Safety Report 15221903 (Version 3)
Quarter: 2018Q4

REPORT INFORMATION
  Report Type: Spontaneous
  Country: US (occurrence: US)
  Receive Date: 20180731
  Receipt Date: 20180824
  Transmission Date: 20190204
  Serious: Yes (Other)
  Sender: FDA-Public Use
  Company Number: US-NEPHRON STERILE COMPOUNDING CENTER-2053019

PATIENT
  Age: 62 Year
  Sex: Female
  Weight: 79 kg

DRUGS (6)
  1. PRESERVATIVE FREE LABETALOL HYDROCHLORIDE INJECTION, USP 20 MG/4 ML (5 [Suspect]
     Active Substance: LABETALOL HYDROCHLORIDE
     Indication: HYPERTENSION
     Route: 042
     Dates: start: 20180727
  2. AMARYL [Concomitant]
     Active Substance: GLIMEPIRIDE
  3. NORVASC [Concomitant]
     Active Substance: AMLODIPINE BESYLATE
  4. KEPPRA [Concomitant]
     Active Substance: LEVETIRACETAM
  5. COLACE [Concomitant]
     Active Substance: DOCUSATE SODIUM
  6. LISINOPRIL. [Concomitant]
     Active Substance: LISINOPRIL

REACTIONS (1)
  - Hypotension [Unknown]

NARRATIVE: CASE EVENT DATE: 20180727
